FAERS Safety Report 13188662 (Version 1)
Quarter: 2017Q1

REPORT INFORMATION
  Report Type: Spontaneous
  Country: US (occurrence: US)
  Receive Date: 20170204
  Receipt Date: 20170204
  Transmission Date: 20170428
  Serious: Yes (Disabling)
  Sender: FDA-Public Use
  Company Number: None

PATIENT
  Age: 54 Year
  Sex: Male
  Weight: 78.75 kg

DRUGS (5)
  1. CIPROFLOXACIN. [Suspect]
     Active Substance: CIPROFLOXACIN
     Indication: POST PROCEDURAL COMPLICATION
     Dosage: ?          QUANTITY:2 TABLET(S);OTHER FREQUENCY:TWO PILLS ONE DAY;?
     Route: 048
     Dates: start: 20170113, end: 20170113
  2. CIPROFLOXACIN. [Suspect]
     Active Substance: CIPROFLOXACIN
     Indication: BIOPSY PROSTATE
     Dosage: ?          QUANTITY:2 TABLET(S);OTHER FREQUENCY:TWO PILLS ONE DAY;?
     Route: 048
     Dates: start: 20170113, end: 20170113
  3. CIPROFLOXACIN. [Suspect]
     Active Substance: CIPROFLOXACIN
     Indication: PROPHYLAXIS
     Dosage: ?          QUANTITY:2 TABLET(S);OTHER FREQUENCY:TWO PILLS ONE DAY;?
     Route: 048
     Dates: start: 20170113, end: 20170113
  4. IBUPROFEN. [Concomitant]
     Active Substance: IBUPROFEN
  5. FIANCEE CREAM FOR ROSACHEA [Concomitant]

REACTIONS (5)
  - Tendon pain [None]
  - Tendon rupture [None]
  - Weight bearing difficulty [None]
  - Muscle rupture [None]
  - Arthralgia [None]

NARRATIVE: CASE EVENT DATE: 20170116
